FAERS Safety Report 25460462 (Version 1)
Quarter: 2025Q2

REPORT INFORMATION
  Report Type: Spontaneous
  Country: US (occurrence: US)
  Receive Date: 20250620
  Receipt Date: 20250620
  Transmission Date: 20250717
  Serious: Yes (Other)
  Sender: MYLAN
  Company Number: US-MYLANLABS-2025M1050138

PATIENT
  Age: 16 Month

DRUGS (48)
  1. PRAZOSIN [Suspect]
     Active Substance: PRAZOSIN
     Indication: Nightmare
  2. PRAZOSIN [Suspect]
     Active Substance: PRAZOSIN
     Indication: Depression
  3. PRAZOSIN [Suspect]
     Active Substance: PRAZOSIN
     Route: 064
  4. PRAZOSIN [Suspect]
     Active Substance: PRAZOSIN
     Route: 064
  5. PRAZOSIN [Suspect]
     Active Substance: PRAZOSIN
  6. PRAZOSIN [Suspect]
     Active Substance: PRAZOSIN
  7. PRAZOSIN [Suspect]
     Active Substance: PRAZOSIN
     Route: 064
  8. PRAZOSIN [Suspect]
     Active Substance: PRAZOSIN
     Route: 064
  9. BUPROPION [Suspect]
     Active Substance: BUPROPION
     Indication: Depression
  10. BUPROPION [Suspect]
     Active Substance: BUPROPION
  11. BUPROPION [Suspect]
     Active Substance: BUPROPION
     Route: 064
  12. BUPROPION [Suspect]
     Active Substance: BUPROPION
     Route: 064
  13. BUPROPION [Suspect]
     Active Substance: BUPROPION
  14. BUPROPION [Suspect]
     Active Substance: BUPROPION
  15. BUPROPION [Suspect]
     Active Substance: BUPROPION
     Route: 064
  16. BUPROPION [Suspect]
     Active Substance: BUPROPION
     Route: 064
  17. LITHIUM [Suspect]
     Active Substance: LITHIUM
     Indication: Depression
  18. LITHIUM [Suspect]
     Active Substance: LITHIUM
  19. LITHIUM [Suspect]
     Active Substance: LITHIUM
     Route: 064
  20. LITHIUM [Suspect]
     Active Substance: LITHIUM
     Route: 064
  21. LITHIUM [Suspect]
     Active Substance: LITHIUM
  22. LITHIUM [Suspect]
     Active Substance: LITHIUM
  23. LITHIUM [Suspect]
     Active Substance: LITHIUM
     Route: 064
  24. LITHIUM [Suspect]
     Active Substance: LITHIUM
     Route: 064
  25. KETAMINE [Suspect]
     Active Substance: KETAMINE
     Indication: Depression
  26. KETAMINE [Suspect]
     Active Substance: KETAMINE
  27. KETAMINE [Suspect]
     Active Substance: KETAMINE
     Route: 064
  28. KETAMINE [Suspect]
     Active Substance: KETAMINE
     Route: 064
  29. KETAMINE [Suspect]
     Active Substance: KETAMINE
  30. KETAMINE [Suspect]
     Active Substance: KETAMINE
  31. KETAMINE [Suspect]
     Active Substance: KETAMINE
     Route: 064
  32. KETAMINE [Suspect]
     Active Substance: KETAMINE
     Route: 064
  33. ESKETAMINE [Suspect]
     Active Substance: ESKETAMINE
     Indication: Depression
  34. ESKETAMINE [Suspect]
     Active Substance: ESKETAMINE
  35. ESKETAMINE [Suspect]
     Active Substance: ESKETAMINE
     Route: 064
  36. ESKETAMINE [Suspect]
     Active Substance: ESKETAMINE
     Route: 064
  37. ESKETAMINE [Suspect]
     Active Substance: ESKETAMINE
  38. ESKETAMINE [Suspect]
     Active Substance: ESKETAMINE
  39. ESKETAMINE [Suspect]
     Active Substance: ESKETAMINE
     Route: 064
  40. ESKETAMINE [Suspect]
     Active Substance: ESKETAMINE
     Route: 064
  41. FLUOXETINE [Suspect]
     Active Substance: FLUOXETINE HYDROCHLORIDE
     Indication: Depression
  42. FLUOXETINE [Suspect]
     Active Substance: FLUOXETINE HYDROCHLORIDE
  43. FLUOXETINE [Suspect]
     Active Substance: FLUOXETINE HYDROCHLORIDE
     Route: 064
  44. FLUOXETINE [Suspect]
     Active Substance: FLUOXETINE HYDROCHLORIDE
     Route: 064
  45. FLUOXETINE [Suspect]
     Active Substance: FLUOXETINE HYDROCHLORIDE
  46. FLUOXETINE [Suspect]
     Active Substance: FLUOXETINE HYDROCHLORIDE
  47. FLUOXETINE [Suspect]
     Active Substance: FLUOXETINE HYDROCHLORIDE
     Route: 064
  48. FLUOXETINE [Suspect]
     Active Substance: FLUOXETINE HYDROCHLORIDE
     Route: 064

REACTIONS (3)
  - Gross motor delay [Unknown]
  - Speech disorder developmental [Unknown]
  - Foetal exposure during pregnancy [Recovered/Resolved]
